FAERS Safety Report 10762886 (Version 1)
Quarter: 2015Q1

REPORT INFORMATION
  Report Type: Spontaneous
  Country: FR (occurrence: FR)
  Receive Date: 20150204
  Receipt Date: 20150204
  Transmission Date: 20150721
  Serious: Yes (Hospitalization)
  Sender: FDA-Public Use
  Company Number: FR-SA-2015SA010357

PATIENT
  Age: 73 Year
  Sex: Male
  Weight: 98 kg

DRUGS (5)
  1. APROVEL [Concomitant]
     Active Substance: IRBESARTAN
  2. LOVENOX [Suspect]
     Active Substance: ENOXAPARIN SODIUM
     Dosage: STRENGTH:0.8
     Route: 058
     Dates: start: 20140219
  3. PREVISCAN [Suspect]
     Active Substance: FLUINDIONE
     Indication: ARTERIAL STENT INSERTION
     Dosage: 0-0-1
     Route: 048
     Dates: end: 20140219
  4. LODOZ [Concomitant]
     Active Substance: BISOPROLOL FUMARATE\HYDROCHLOROTHIAZIDE
  5. MODURETIC 5-50 [Concomitant]
     Active Substance: AMILORIDE HYDROCHLORIDE\HYDROCHLOROTHIAZIDE

REACTIONS (6)
  - Anaemia [Recovering/Resolving]
  - Acute prerenal failure [Unknown]
  - Duodenal ulcer [Recovered/Resolved]
  - Asthenia [Recovered/Resolved]
  - Gastrointestinal haemorrhage [Recovered/Resolved]
  - Melaena [Recovered/Resolved]

NARRATIVE: CASE EVENT DATE: 20140301
